FAERS Safety Report 11907365 (Version 3)
Quarter: 2016Q1

REPORT INFORMATION
  Report Type: Report from Study
  Country: BE (occurrence: BE)
  Receive Date: 20160111
  Receipt Date: 20160113
  Transmission Date: 20160526
  Serious: Yes (Other)
  Sender: FDA-Public Use
  Company Number: BE-JNJFOC-20160102898

PATIENT
  Sex: Female
  Weight: 65 kg

DRUGS (1)
  1. TMC278 [Suspect]
     Active Substance: DARUNAVIR
     Indication: HIV INFECTION
     Route: 048
     Dates: start: 20121105

REACTIONS (3)
  - Gestational diabetes [Unknown]
  - Urinary tract infection [Unknown]
  - Exposure during pregnancy [Recovered/Resolved]
